FAERS Safety Report 21540796 (Version 1)
Quarter: 2022Q4

REPORT INFORMATION
  Report Type: Spontaneous
  Country: US (occurrence: None)
  Receive Date: 20221031
  Receipt Date: 20221031
  Transmission Date: 20230113
  Serious: No
  Sender: FDA-Public Use
  Company Number: None

PATIENT
  Age: 17 Year
  Sex: Female

DRUGS (1)
  1. NEXPLANON [Suspect]
     Active Substance: ETONOGESTREL
     Indication: Illness
     Dosage: FREQUENCY : ONCE;?OTHER ROUTE : SUBDERMALLY;?
     Route: 050
     Dates: start: 20221028

REACTIONS (4)
  - Complication of device insertion [None]
  - Procedural failure [None]
  - Therapy interrupted [None]
  - Product dose omission issue [None]

NARRATIVE: CASE EVENT DATE: 20221028
